FAERS Safety Report 14023433 (Version 1)
Quarter: 2017Q3

REPORT INFORMATION
  Report Type: Spontaneous
  Country: US (occurrence: US)
  Receive Date: 20170929
  Receipt Date: 20170929
  Transmission Date: 20171128
  Serious: Yes (Disabling, Other)
  Sender: FDA-Public Use
  Company Number: US-TEVA-811130USA

PATIENT
  Sex: Male

DRUGS (1)
  1. AMIODARONE [Suspect]
     Active Substance: AMIODARONE
     Dosage: 200 MG-400 MG DAILY
     Route: 065
     Dates: start: 20150926, end: 20160404

REACTIONS (5)
  - Visual impairment [Unknown]
  - Dysphonia [Unknown]
  - Parkinson^s disease [Unknown]
  - Muscular weakness [Unknown]
  - Pulmonary toxicity [Unknown]
